FAERS Safety Report 10244265 (Version 1)
Quarter: 2014Q1

REPORT INFORMATION
  Report Type: Spontaneous
  Country: US (occurrence: None)
  Receive Date: 20140306
  Receipt Date: 20140306
  Transmission Date: 20141002
  Serious: Yes (Hospitalization)
  Sender: FDA-Public Use
  Company Number: 163-21880-13100807

PATIENT
  Age: 51 Year
  Sex: Female

DRUGS (8)
  1. REVLIMID (LENALIDOMIDE) (10 MILLIGRAM, CAPSULES) [Suspect]
     Indication: PLASMA CELL MYELOMA
     Route: 048
     Dates: start: 20130930
  2. ASA (ACETYLSALICYLIC ACID) (UNKNOWN) [Concomitant]
  3. DICLOXACILLIN SODIUM (DICLOXACILLIN SODIUM MONOHYDRATE) (CAPSULES) [Concomitant]
  4. FLUDROCORTISONE (TABLETS) [Concomitant]
  5. HYDROXYZINE HYDROCHLORIDE (TABLETS) [Concomitant]
  6. LEVOFLOXACIN (TABLETS) [Concomitant]
  7. PREDNISONE (TABLETS) [Concomitant]
  8. PROCHLORPERAZINE MALEATE (TABLETS) [Concomitant]

REACTIONS (2)
  - Cellulitis [None]
  - Rash [None]
